FAERS Safety Report 15741822 (Version 1)
Quarter: 2018Q4

REPORT INFORMATION
  Report Type: Spontaneous
  Country: IT (occurrence: IT)
  Receive Date: 20181219
  Receipt Date: 20181219
  Transmission Date: 20190205
  Serious: Yes (Hospitalization)
  Sender: FDA-Public Use
  Company Number: IT-B.I. PHARMACEUTICALS,INC./RIDGEFIELD-2018-BI-060196

PATIENT
  Age: 73 Year
  Sex: Female

DRUGS (2)
  1. PRADAXA [Suspect]
     Active Substance: DABIGATRAN ETEXILATE MESYLATE
     Indication: ATRIAL FIBRILLATION
     Dosage: WAS TAKEN IN THE MORNING AND IN THE EVENING
     Route: 065
  2. ALMARYTM - FLECAINIDE [Concomitant]
     Indication: ATRIAL FIBRILLATION
     Dosage: 1 CP (AS REPORTED)  X2
     Route: 065

REACTIONS (1)
  - Atrial flutter [Recovered/Resolved]
